FAERS Safety Report 16304673 (Version 2)
Quarter: 2019Q2

REPORT INFORMATION
  Report Type: Spontaneous
  Country: DE (occurrence: DE)
  Receive Date: 20190513
  Receipt Date: 20190610
  Transmission Date: 20190711
  Serious: Yes (Hospitalization, Other)
  Sender: FDA-Public Use
  Company Number: DE-PFIZER INC-2019197109

PATIENT
  Sex: Female
  Weight: 60 kg

DRUGS (2)
  1. EPIRUBICIN HCL [Suspect]
     Active Substance: EPIRUBICIN HYDROCHLORIDE
     Indication: NEUROENDOCRINE TUMOUR
     Dosage: 50 MG, SINGLE
     Route: 013
     Dates: start: 20190227, end: 20190227
  2. SANDOSTATIN LAR DEPOT [Suspect]
     Active Substance: OCTREOTIDE ACETATE
     Indication: NEUROENDOCRINE CARCINOMA
     Dosage: 30 MG, QMO
     Route: 030
     Dates: start: 20190206

REACTIONS (4)
  - Pyrexia [Recovered/Resolved]
  - Post embolisation syndrome [Unknown]
  - Nausea [Recovered/Resolved]
  - Pain [Recovered/Resolved]

NARRATIVE: CASE EVENT DATE: 20190228
